FAERS Safety Report 4546720-X (Version None)
Quarter: 2005Q1

REPORT INFORMATION
  Report Type: 
  Country: None (occurrence: None)
  Receive Date: 20050105
  Receipt Date: 20041223
  Transmission Date: 20050727
  Serious: Yes (Other)
  Sender: FDA-Public Use
  Company Number: 2004115959

PATIENT
  Age: 18 Year
  Sex: Female

DRUGS (1)
  1. DEPO-PROVERA [Suspect]
     Indication: ILL-DEFINED DISORDER
     Dosage: (1ST INJECTION), INTRAMUSCULAR
     Route: 030
     Dates: start: 20041209, end: 20041209

REACTIONS (4)
  - ASTHMA [None]
  - CONDITION AGGRAVATED [None]
  - LARYNGEAL OEDEMA [None]
  - URTICARIA [None]
